FAERS Safety Report 15933716 (Version 3)
Quarter: 2020Q3

REPORT INFORMATION
  Report Type: Spontaneous
  Country: JP (occurrence: JP)
  Receive Date: 20190207
  Receipt Date: 20200930
  Transmission Date: 20201102
  Serious: Yes (Hospitalization, Other)
  Sender: FDA-Public Use
  Company Number: JP-BRISTOL-MYERS SQUIBB COMPANY-BMS-2019-012014

PATIENT
  Age: 74 Year
  Sex: Female
  Weight: 46 kg

DRUGS (5)
  1. OPDIVO [Suspect]
     Active Substance: NIVOLUMAB
     Dosage: 114 MG(2018/4/13,4/27)
     Route: 041
     Dates: start: 20180413, end: 20180427
  2. OPDIVO [Suspect]
     Active Substance: NIVOLUMAB
     Indication: METASTATIC RENAL CELL CARCINOMA
     Dosage: 120 MG(2017/8/25,12/22,2018/1/5,1/19,2/2)
     Route: 041
     Dates: start: 20170825, end: 20180202
  3. OPDIVO [Suspect]
     Active Substance: NIVOLUMAB
     Dosage: 125 MG(2017/9/8,9/22,10/6)
     Route: 041
     Dates: start: 20170908, end: 20171006
  4. OPDIVO [Suspect]
     Active Substance: NIVOLUMAB
     Dosage: 129 MG(2017/10/27,11/10,11/24,12/8)
     Route: 041
     Dates: start: 20171027, end: 20171208
  5. OPDIVO [Suspect]
     Active Substance: NIVOLUMAB
     Dosage: 123 MG(2018/2/16,3/2,3/16,3/30)
     Route: 041
     Dates: start: 20180216, end: 20180330

REACTIONS (6)
  - Diarrhoea [Recovered/Resolved]
  - Appendicitis [Recovered/Resolved]
  - Pyrexia [Recovered/Resolved]
  - Malaise [Recovered/Resolved]
  - Eczema [Not Recovered/Not Resolved]
  - Amylase increased [Not Recovered/Not Resolved]

NARRATIVE: CASE EVENT DATE: 20170825
